FAERS Safety Report 7919030-8 (Version None)
Quarter: 2011Q4

REPORT INFORMATION
  Report Type: 
  Country: None (occurrence: None)
  Receive Date: 20111116
  Receipt Date: 20111103
  Transmission Date: 20120403
  Serious: Yes (Other)
  Sender: FDA-Public Use
  Company Number: US-ELI_LILLY_AND_COMPANY-US201106001524

PATIENT
  Sex: Female
  Weight: 45 kg

DRUGS (10)
  1. ASCORBIC ACID [Concomitant]
  2. CALCIUM [Concomitant]
  3. VITAMIN TAB [Concomitant]
  4. MULTI-VITAMINS [Concomitant]
  5. VITAMIN B COMPLEX CAP [Concomitant]
  6. HYDROCHLOROTHIAZIDE [Concomitant]
  7. FORTEO [Suspect]
     Indication: OSTEOPOROSIS
     Dosage: 20 UG, QD
     Dates: start: 20100206
  8. ASPIRIN [Concomitant]
     Indication: HEADACHE
     Dosage: UNK, PRN
  9. FORTEO [Suspect]
     Dosage: 20 UG, QD
  10. FORTEO [Suspect]
     Dosage: 20 UG, QD

REACTIONS (3)
  - BREAST CANCER IN SITU [None]
  - BREAST CANCER [None]
  - HYPERCALCAEMIA [None]
